FAERS Safety Report 7042795-7 (Version None)
Quarter: 2010Q4

REPORT INFORMATION
  Report Type: 
  Country: None (occurrence: None)
  Receive Date: 20101013
  Receipt Date: 20091008
  Transmission Date: 20110411
  Serious: No
  Sender: FDA-Public Use
  Company Number: US-ASTRAZENECA-2009SE18875

PATIENT
  Sex: Male
  Weight: 88.5 kg

DRUGS (2)
  1. SYMBICORT [Suspect]
     Indication: CHRONIC OBSTRUCTIVE PULMONARY DISEASE
     Dosage: 640 MCG
     Route: 055
     Dates: start: 20090801, end: 20090901
  2. CRESTOR [Concomitant]
     Route: 048

REACTIONS (5)
  - COUGH [None]
  - HEADACHE [None]
  - OEDEMA MOUTH [None]
  - PULMONARY CONGESTION [None]
  - STOMATITIS [None]
